FAERS Safety Report 10203253 (Version 1)
Quarter: 2014Q2

REPORT INFORMATION
  Report Type: Report from Study
  Country: IT (occurrence: IT)
  Receive Date: 20140529
  Receipt Date: 20140529
  Transmission Date: 20141212
  Serious: Yes (Hospitalization)
  Sender: FDA-Public Use
  Company Number: IT-AMGEN INC.-ITANI2014038151

PATIENT
  Age: 33 Year
  Sex: Female

DRUGS (9)
  1. PEGFILGRASTIM [Suspect]
     Indication: HODGKIN^S DISEASE
     Dosage: 6 MG, UNK
     Route: 058
     Dates: start: 20020618
  2. VINBLASTINE [Concomitant]
     Indication: HODGKIN^S DISEASE
     Dosage: 9 MG, UNK
     Route: 042
     Dates: start: 20020618
  3. LEUKERAN [Concomitant]
     Indication: HODGKIN^S DISEASE
     Dosage: 8 MG ALTERNATE TO 10 MG, UNK
     Route: 048
     Dates: start: 20020618
  4. PROCARBAZINE [Concomitant]
     Indication: HODGKIN^S DISEASE
     Dosage: 100 MG ALTERNATE TO 150 MG, UNK
     Route: 048
     Dates: start: 20020618
  5. PREDNISONE [Concomitant]
     Indication: HODGKIN^S DISEASE
     Dosage: 50 MG, UNK
     Route: 048
     Dates: start: 20020618
  6. ADRIAMYCIN                         /00330901/ [Concomitant]
     Indication: HODGKIN^S DISEASE
     Dosage: 45 MG, UNK
     Route: 042
     Dates: start: 20020618
  7. ETOPOSIDE [Concomitant]
     Indication: HODGKIN^S DISEASE
     Dosage: 450 MG, UNK
     Route: 042
     Dates: start: 20020618
  8. VINCRISTINE [Concomitant]
     Indication: HODGKIN^S DISEASE
     Dosage: 0.7 MG, UNK
     Route: 042
     Dates: start: 20020618
  9. BLEOMYCIN [Concomitant]
     Indication: HODGKIN^S DISEASE
     Dosage: 11
     Route: 042
     Dates: start: 20020618

REACTIONS (1)
  - Pain in extremity [Recovered/Resolved]
